FAERS Safety Report 15720121 (Version 1)
Quarter: 2018Q4

REPORT INFORMATION
  Report Type: Report from Study
  Country: CA (occurrence: CA)
  Receive Date: 20181213
  Receipt Date: 20181213
  Transmission Date: 20190205
  Serious: Yes (Other)
  Sender: FDA-Public Use
  Company Number: CA-JNJFOC-20181211073

PATIENT
  Age: 41 Year
  Sex: Male
  Weight: 89 kg

DRUGS (2)
  1. STELARA [Suspect]
     Active Substance: USTEKINUMAB
     Indication: CROHN^S DISEASE
     Dosage: STRENGTH = 90 MG
     Route: 042
     Dates: start: 20181207
  2. STELARA [Suspect]
     Active Substance: USTEKINUMAB
     Indication: CROHN^S DISEASE
     Route: 042
     Dates: start: 20181012

REACTIONS (3)
  - Abscess [Unknown]
  - Abdominal pain [Unknown]
  - Fistula [Unknown]

NARRATIVE: CASE EVENT DATE: 2018
